FAERS Safety Report 23273196 (Version 1)
Quarter: 2023Q4

REPORT INFORMATION
  Report Type: Spontaneous
  Country: US (occurrence: None)
  Receive Date: 20231207
  Receipt Date: 20231207
  Transmission Date: 20240110
  Serious: Yes (Hospitalization)
  Sender: FDA-Public Use
  Company Number: None

PATIENT
  Sex: Female

DRUGS (1)
  1. OTEZLA [Suspect]
     Active Substance: APREMILAST
     Indication: Psoriasis
     Dosage: 30MG TWICE A DAY BY MOUTH
     Route: 048
     Dates: start: 202310

REACTIONS (4)
  - Cardiac operation [None]
  - Intentional dose omission [None]
  - Psoriasis [None]
  - Product use issue [None]
